FAERS Safety Report 6788861-2 (Version None)
Quarter: 2010Q2

REPORT INFORMATION
  Report Type: 
  Country: None (occurrence: None)
  Receive Date: 20100623
  Receipt Date: 20080709
  Transmission Date: 20101027
  Serious: No
  Sender: FDA-Public Use
  Company Number: US-PFIZER INC-2008032991

PATIENT
  Sex: Female
  Weight: 48.99 kg

DRUGS (2)
  1. XALATAN [Suspect]
     Indication: NORMAL TENSION GLAUCOMA
     Route: 031
     Dates: start: 20010101
  2. LUMIGAN [Suspect]
     Indication: NORMAL TENSION GLAUCOMA
     Route: 031
     Dates: start: 20020101, end: 20080201

REACTIONS (3)
  - EYE IRRITATION [None]
  - OCULAR HYPERAEMIA [None]
  - PARKINSON'S DISEASE [None]
